FAERS Safety Report 13122796 (Version 12)
Quarter: 2021Q2

REPORT INFORMATION
  Report Type: Report from Study
  Country: JP (occurrence: JP)
  Receive Date: 20170117
  Receipt Date: 20210408
  Transmission Date: 20210716
  Serious: Yes (Hospitalization)
  Sender: FDA-Public Use
  Company Number: JP-BIOGEN-2017BI00340891

PATIENT
  Age: 5 Year
  Sex: Male
  Weight: 20 kg

DRUGS (7)
  1. EFMOROCTOCOG ALFA [Suspect]
     Active Substance: EFMOROCTOCOG ALFA
     Indication: IMMUNE TOLERANCE INDUCTION
     Dosage: 2000 IU, QIW
     Route: 042
     Dates: start: 20160703, end: 20161221
  2. EFMOROCTOCOG ALFA [Suspect]
     Active Substance: EFMOROCTOCOG ALFA
     Indication: IMMUNE TOLERANCE INDUCTION
     Dosage: 2000 IU, QIW
     Route: 042
     Dates: start: 20160703, end: 20161221
  3. EFMOROCTOCOG ALFA [Suspect]
     Active Substance: EFMOROCTOCOG ALFA
     Dosage: UNK
     Route: 042
     Dates: start: 20170118, end: 20180926
  4. EFMOROCTOCOG ALFA [Suspect]
     Active Substance: EFMOROCTOCOG ALFA
     Dosage: UNK
     Route: 042
     Dates: start: 20170118, end: 20180926
  5. EFMOROCTOCOG ALFA [Suspect]
     Active Substance: EFMOROCTOCOG ALFA
     Indication: FACTOR VIII DEFICIENCY
     Dosage: 2000 IU, QIW AT NIGHT
     Route: 042
     Dates: start: 20160703, end: 20161221
  6. EFMOROCTOCOG ALFA [Suspect]
     Active Substance: EFMOROCTOCOG ALFA
     Indication: FACTOR VIII DEFICIENCY
     Dosage: 2000 IU, QIW AT NIGHT
     Route: 042
     Dates: start: 20160703, end: 20161221
  7. FEIBA [Concomitant]
     Active Substance: ANTI-INHIBITOR COAGULANT COMPLEX
     Indication: HAEMOSTASIS
     Route: 042
     Dates: start: 20141203, end: 20170208

REACTIONS (2)
  - Factor VIII inhibition [Recovered/Resolved]
  - Off label use [Unknown]

NARRATIVE: CASE EVENT DATE: 20160703
